FAERS Safety Report 20141698 (Version 1)
Quarter: 2021Q4

REPORT INFORMATION
  Report Type: Spontaneous
  Country: US (occurrence: US)
  Receive Date: 20211202
  Receipt Date: 20211202
  Transmission Date: 20220304
  Serious: No
  Sender: FDA-Public Use
  Company Number: US-Teikoku Pharma USA-TPU2021-01102

PATIENT
  Sex: Female

DRUGS (1)
  1. LIDODERM [Suspect]
     Active Substance: LIDOCAINE
     Indication: Product used for unknown indication
     Route: 061

REACTIONS (3)
  - Inappropriate schedule of product administration [Unknown]
  - Expired product administered [Unknown]
  - Therapeutic product effect decreased [Unknown]
